FAERS Safety Report 4926748-8 (Version None)
Quarter: 2006Q1

REPORT INFORMATION
  Report Type: 
  Country: None (occurrence: None)
  Receive Date: 20060228
  Receipt Date: 20050609
  Transmission Date: 20060701
  Serious: Yes (Hospitalization)
  Sender: FDA-Public Use
  Company Number: US-GLAXOSMITHKLINE-A0562025A

PATIENT
  Age: 65 Year
  Sex: Male

DRUGS (5)
  1. LAMICTAL [Suspect]
     Indication: BIPOLAR DISORDER
     Route: 048
     Dates: end: 20050602
  2. SEROQUEL [Concomitant]
  3. REMERON [Concomitant]
  4. AMBIEN [Concomitant]
  5. ANTIHYPERTENSIVE [Concomitant]

REACTIONS (4)
  - DIARRHOEA [None]
  - DIZZINESS [None]
  - SYNCOPE [None]
  - THROMBOCYTOPENIA [None]
